FAERS Safety Report 5342584-5 (Version None)
Quarter: 2007Q2

REPORT INFORMATION
  Report Type: 
  Country: None (occurrence: None)
  Receive Date: 20070601
  Receipt Date: 20070323
  Transmission Date: 20071010
  Serious: No
  Sender: FDA-Public Use
  Company Number: A0644870A

PATIENT
  Age: 3 Year
  Sex: Male

DRUGS (1)
  1. AUGMENTIN '125' [Suspect]
     Indication: ACUTE SINUSITIS
     Route: 048
     Dates: start: 20070301

REACTIONS (2)
  - DRUG DISPENSING ERROR [None]
  - NO ADVERSE EFFECT [None]
